FAERS Safety Report 5490637-3 (Version None)
Quarter: 2007Q4

REPORT INFORMATION
  Report Type: 
  Country: None (occurrence: None)
  Receive Date: 20071019
  Receipt Date: 20071012
  Transmission Date: 20080405
  Serious: Yes (Other)
  Sender: FDA-Public Use
  Company Number: CA-ASTRAZENECA-2007UW23766

PATIENT
  Age: 32 Year
  Sex: Female

DRUGS (3)
  1. SYMBICORT [Suspect]
     Route: 055
  2. ADVAIR DISKUS 100/50 [Suspect]
     Route: 055
  3. FLOVENT DISKUS 100 [Suspect]
     Route: 055

REACTIONS (3)
  - DYSPHONIA [None]
  - LARYNGEAL CANCER STAGE 0 [None]
  - SQUAMOUS CELL CARCINOMA [None]
